FAERS Safety Report 12238292 (Version 1)
Quarter: 2016Q2

REPORT INFORMATION
  Report Type: Spontaneous
  Country: US (occurrence: US)
  Receive Date: 20160405
  Receipt Date: 20160405
  Transmission Date: 20160815
  Serious: No
  Sender: FDA-Public Use
  Company Number: US-B.I. PHARMACEUTICALS,INC./RIDGEFIELD-2016-BI-18858BP

PATIENT
  Age: 52 Year
  Sex: Male

DRUGS (3)
  1. JANUMET [Concomitant]
     Active Substance: METFORMIN HYDROCHLORIDE\SITAGLIPTIN PHOSPHATE
     Indication: DIABETES MELLITUS
     Dosage: DOSE PER APPLICATION: 50MG/500MG; DAILY DOSE: 100MG/1000MG
     Route: 048
     Dates: start: 2011
  2. TOUJEO [Concomitant]
     Active Substance: INSULIN GLARGINE
     Indication: DIABETES MELLITUS
     Dosage: STRENGTH: 300 UNITS/ML
     Route: 058
     Dates: start: 201601
  3. TRADJENTA [Suspect]
     Active Substance: LINAGLIPTIN
     Indication: DIABETES MELLITUS
     Dosage: 5 MG
     Route: 048
     Dates: start: 201512

REACTIONS (1)
  - Drug ineffective [Not Recovered/Not Resolved]

NARRATIVE: CASE EVENT DATE: 201512
